FAERS Safety Report 5580968-0 (Version None)
Quarter: 2007Q4

REPORT INFORMATION
  Report Type: 
  Country: None (occurrence: None)
  Receive Date: 20071130
  Receipt Date: 20070702
  Transmission Date: 20080405
  Serious: No
  Sender: FDA-Public Use
  Company Number: US200707001705

PATIENT
  Age: 55 Year
  Sex: Female

DRUGS (2)
  1. BYETTA [Suspect]
     Dosage: 5 UG, DAILY (1/D), 10UG, 2/D SUBCUTANEOUS
     Route: 058
  2. . [Concomitant]

REACTIONS (1)
  - VISION BLURRED [None]
